FAERS Safety Report 8350059-4 (Version None)
Quarter: 2012Q2

REPORT INFORMATION
  Report Type: 
  Country: None (occurrence: None)
  Receive Date: 20120510
  Receipt Date: 20120507
  Transmission Date: 20120825
  Serious: Yes (Hospitalization)
  Sender: FDA-Public Use
  Company Number: US-BAYER-2012-045466

PATIENT
  Age: 39 Year
  Sex: Female
  Weight: 61.224 kg

DRUGS (6)
  1. SYNTHROID [Concomitant]
  2. ZITHROMAX [Concomitant]
  3. NEXIUM [Concomitant]
     Route: 048
  4. ZOLOFT [Concomitant]
     Dosage: 100 MG, UNK
     Route: 048
  5. YAZ [Suspect]
     Dosage: UNK
     Dates: start: 20090101, end: 20111229
  6. LEVOTHYROXINE SODIUM [Concomitant]
     Dosage: 50 UNK, UNK
     Route: 048

REACTIONS (2)
  - PULMONARY INFARCTION [None]
  - PULMONARY EMBOLISM [None]
